FAERS Safety Report 14119669 (Version 2)
Quarter: 2019Q1

REPORT INFORMATION
  Report Type: Spontaneous
  Country: US (occurrence: US)
  Receive Date: 20171024
  Receipt Date: 20190321
  Transmission Date: 20190417
  Serious: No
  Sender: FDA-Public Use
  Company Number: US-PFIZER INC-2017455778

PATIENT
  Sex: Male

DRUGS (1)
  1. RAPAMUNE [Suspect]
     Active Substance: SIROLIMUS
     Dosage: 3 MG, DAILY (1 MG 3 TABLETS A DAY)

REACTIONS (3)
  - Ligament sprain [Unknown]
  - Road traffic accident [Unknown]
  - Muscular weakness [Unknown]
